FAERS Safety Report 6318527-4 (Version None)
Quarter: 2009Q3

REPORT INFORMATION
  Report Type: 
  Country: None (occurrence: None)
  Receive Date: 20090821
  Receipt Date: 20090814
  Transmission Date: 20100115
  Serious: Yes (Hospitalization)
  Sender: FDA-Public Use
  Company Number: PHHO2009GB09725

PATIENT
  Sex: Male
  Weight: 75.1 kg

DRUGS (1)
  1. RAD 666 RAD+TAB [Suspect]
     Indication: METASTATIC RENAL CELL CARCINOMA
     Dosage: 5 MG/DAY
     Route: 048
     Dates: start: 20090415

REACTIONS (5)
  - BLADDER CATHETERISATION [None]
  - BLADDER IRRIGATION [None]
  - HAEMATURIA [None]
  - HAEMORRHAGE URINARY TRACT [None]
  - URINARY RETENTION [None]
